FAERS Safety Report 5678364-0 (Version None)
Quarter: 2008Q1

REPORT INFORMATION
  Report Type: 
  Country: None (occurrence: None)
  Receive Date: 20080321
  Receipt Date: 20080307
  Transmission Date: 20080703
  Serious: No
  Sender: FDA-Public Use
  Company Number: US022920

PATIENT
  Sex: Male

DRUGS (2)
  1. FENTORA [Suspect]
     Indication: CLUSTER HEADACHE
     Dosage: 800 UG   BUCCAL
     Route: 002
  2. VICODIN [Concomitant]

REACTIONS (1)
  - DRUG PRESCRIBING ERROR [None]
